FAERS Safety Report 15332894 (Version 1)
Quarter: 2018Q3

REPORT INFORMATION
  Report Type: Spontaneous
  Country: US (occurrence: US)
  Receive Date: 20180830
  Receipt Date: 20180830
  Transmission Date: 20181010
  Serious: No
  Sender: FDA-Public Use
  Company Number: US-PRINSTON PHARMACEUTICAL INC.-2018PRN00556

PATIENT
  Sex: Male

DRUGS (1)
  1. DULOXETINE. [Suspect]
     Active Substance: DULOXETINE
     Indication: GENERAL SYMPTOM
     Dosage: UNK

REACTIONS (6)
  - Therapeutic response changed [Unknown]
  - Paraesthesia [Unknown]
  - Asthenia [Unknown]
  - Dizziness [Unknown]
  - Weight decreased [Unknown]
  - Drug ineffective [Unknown]
